FAERS Safety Report 4686642-7 (Version None)
Quarter: 2005Q2

REPORT INFORMATION
  Report Type: 
  Country: None (occurrence: None)
  Receive Date: 20050608
  Receipt Date: 20050526
  Transmission Date: 20051028
  Serious: Yes (Death, Hospitalization)
  Sender: FDA-Public Use
  Company Number: 2005-05-0013

PATIENT
  Age: 69 Year
  Sex: Female

DRUGS (7)
  1. QVAR 40 [Suspect]
     Indication: ASTHMA
     Dosage: 2 IN 1 DAY INHALATION
     Route: 055
     Dates: start: 20030512, end: 20031030
  2. CELESTAMINE TAB [Concomitant]
  3. CLARITHROMYCIN [Concomitant]
  4. HERBESSER [Concomitant]
  5. THEO-DUR [Concomitant]
  6. TAKEPRON [Concomitant]
  7. DEPAS [Concomitant]

REACTIONS (1)
  - CEREBRAL INFARCTION [None]
